FAERS Safety Report 9097025 (Version 1)
Quarter: 2013Q1

REPORT INFORMATION
  Report Type: Spontaneous
  Country: GB (occurrence: None)
  Receive Date: 20130123
  Receipt Date: 20130123
  Transmission Date: 20140127
  Serious: Yes (Other)
  Sender: FDA-Public Use
  Company Number: GER/UKI/13/0027447

PATIENT
  Age: 75 Year
  Sex: Male
  Weight: 99.78 kg

DRUGS (5)
  1. CLOPIDOGREL (CLOPIDOGREL) [Suspect]
     Indication: VASCULAR GRAFT
     Route: 048
     Dates: start: 20120511
  2. WARFARIN (WARFARIN) [Concomitant]
  3. ANTIBIOTICS NOS (ANTIBIOTICS) [Concomitant]
  4. CO-CODAMOL (PANADEINE CO) [Concomitant]
  5. THYROXINE (LEVOTHYROXINE SODIUM) [Concomitant]

REACTIONS (3)
  - Gastric disorder [None]
  - Medication error [None]
  - Drug interaction [None]
